FAERS Safety Report 11151363 (Version 1)
Quarter: 2015Q2

REPORT INFORMATION
  Report Type: Spontaneous
  Country: US (occurrence: US)
  Receive Date: 20150601
  Receipt Date: 20150601
  Transmission Date: 20150821
  Serious: No
  Sender: FDA-Public Use
  Company Number: US-009507513-1506USA000009

PATIENT
  Age: 1 Year
  Sex: Female

DRUGS (1)
  1. SINGULAIR [Suspect]
     Active Substance: MONTELUKAST SODIUM
     Dosage: 4 MG, UNK
     Route: 048
     Dates: start: 20150518

REACTIONS (2)
  - Lethargy [Unknown]
  - Ear infection [Unknown]

NARRATIVE: CASE EVENT DATE: 201505
